FAERS Safety Report 5908975-6 (Version None)
Quarter: 2008Q4

REPORT INFORMATION
  Report Type: 
  Country: None (occurrence: None)
  Receive Date: 20081006
  Receipt Date: 20081003
  Transmission Date: 20090506
  Serious: Yes (Death)
  Sender: FDA-Public Use
  Company Number: US-ASTRAZENECA-2008UW21601

PATIENT
  Age: 55 Year
  Sex: Female

DRUGS (6)
  1. CRESTOR [Suspect]
     Indication: BLOOD CHOLESTEROL INCREASED
     Dosage: 10MG
     Route: 048
  2. FELODIPINE ER [Concomitant]
     Dosage: 5MG
  3. TRAMADOL HCL [Concomitant]
     Dosage: 50MG
  4. MAXZIDE [Concomitant]
     Dosage: 37.5/25MG
  5. COZAAR [Concomitant]
  6. LEVOTHYROXINE SODIUM [Concomitant]

REACTIONS (1)
  - DEATH [None]
